FAERS Safety Report 10331072 (Version 1)
Quarter: 2014Q3

REPORT INFORMATION
  Report Type: Spontaneous
  Country: US (occurrence: None)
  Receive Date: 20140721
  Receipt Date: 20140721
  Transmission Date: 20150326
  Serious: Yes (Other)
  Sender: FDA-Public Use
  Company Number: None

PATIENT
  Age: 16 Year
  Sex: Male

DRUGS (1)
  1. VOTRIENT [Suspect]
     Active Substance: PAZOPANIB HYDROCHLORIDE
     Indication: KAPOSI^S SARCOMA
     Route: 048
     Dates: start: 20140630, end: 20140709

REACTIONS (2)
  - Ejection fraction decreased [None]
  - Tumour pain [None]

NARRATIVE: CASE EVENT DATE: 20140709
